FAERS Safety Report 25240710 (Version 1)
Quarter: 2025Q2

REPORT INFORMATION
  Report Type: Spontaneous
  Country: US (occurrence: US)
  Receive Date: 20250425
  Receipt Date: 20250425
  Transmission Date: 20250717
  Serious: Yes (Death, Other)
  Sender: AMGEN
  Company Number: US-AMGEN-USASP2025076848

PATIENT
  Age: 42 Year
  Sex: Male

DRUGS (3)
  1. BEVACIZUMAB [Suspect]
     Active Substance: BEVACIZUMAB
     Indication: Signet-ring cell carcinoma
     Route: 065
  2. FLUOROURACIL\IRINOTECAN\LEUCOVORIN [Concomitant]
     Active Substance: FLUOROURACIL\IRINOTECAN\LEUCOVORIN
     Indication: Signet-ring cell carcinoma
     Route: 065
  3. FLUOROURACIL\LEUCOVORIN CALCIUM\OXALIPLATIN [Concomitant]
     Active Substance: FLUOROURACIL\LEUCOVORIN CALCIUM\OXALIPLATIN
     Indication: Signet-ring cell carcinoma

REACTIONS (5)
  - Chest discomfort [Unknown]
  - Duodenal neoplasm [Unknown]
  - Sepsis [Fatal]
  - Off label use [Unknown]
  - Complication of device insertion [Unknown]
